FAERS Safety Report 13215907 (Version 1)
Quarter: 2017Q1

REPORT INFORMATION
  Report Type: Spontaneous
  Country: CA (occurrence: CA)
  Receive Date: 20170209
  Receipt Date: 20170209
  Transmission Date: 20170428
  Serious: Yes (Hospitalization)
  Sender: FDA-Public Use
  Company Number: CA-SCIEGEN PHARMACEUTICALS INC-2017SCILIT00039

PATIENT
  Age: 53 Year
  Sex: Male
  Weight: 56 kg

DRUGS (3)
  1. LITHIUM. [Suspect]
     Active Substance: LITHIUM
     Indication: PRODUCT USED FOR UNKNOWN INDICATION
     Dosage: 300 MG, TID
     Route: 065
  2. HYDROCHLOROTHIAZIDE TABLETS [Suspect]
     Active Substance: HYDROCHLOROTHIAZIDE
     Indication: PRODUCT USED FOR UNKNOWN INDICATION
     Dosage: 25 MG, QD
     Route: 065
  3. TRIAMTERENE. [Suspect]
     Active Substance: TRIAMTERENE
     Indication: PRODUCT USED FOR UNKNOWN INDICATION
     Dosage: 50 MG, QD
     Route: 065

REACTIONS (10)
  - Uraemic encephalopathy [Unknown]
  - Dehydration [Unknown]
  - Coma scale abnormal [Unknown]
  - Hypernatraemia [Recovered/Resolved]
  - Hypovolaemia [Unknown]
  - Acute kidney injury [Unknown]
  - Renal tubular necrosis [Unknown]
  - Depressed level of consciousness [Recovering/Resolving]
  - Sepsis [Unknown]
  - Gastrointestinal disorder [Unknown]
